FAERS Safety Report 7019633-1 (Version None)
Quarter: 2010Q3

REPORT INFORMATION
  Report Type: 
  Country: None (occurrence: None)
  Receive Date: 20100928
  Receipt Date: 20100928
  Transmission Date: 20110219
  Serious: No
  Sender: FDA-Public Use
  Company Number: None

PATIENT
  Age: 52 Year
  Sex: Female
  Weight: 64.8644 kg

DRUGS (1)
  1. CIPRO 500 MG UNKNOWN MAY BE AVAILABLE PHARMACY [Suspect]
     Indication: SINUSITIS
     Dosage: 2X DAILY PO
     Route: 048
     Dates: start: 20100712, end: 20100726

REACTIONS (2)
  - CONVULSION [None]
  - PAIN IN EXTREMITY [None]
